FAERS Safety Report 9339649 (Version 1)
Quarter: 2013Q2

REPORT INFORMATION
  Report Type: Spontaneous
  Country: US (occurrence: US)
  Receive Date: 20130610
  Receipt Date: 20130610
  Transmission Date: 20140414
  Serious: No
  Sender: FDA-Public Use
  Company Number: US-BIOGENIDEC-2013BI051166

PATIENT
  Sex: Male

DRUGS (2)
  1. TYSABRI [Suspect]
     Indication: MULTIPLE SCLEROSIS
     Route: 042
     Dates: start: 20070425, end: 20071106
  2. TYSABRI [Suspect]
     Indication: MULTIPLE SCLEROSIS
     Route: 042
     Dates: start: 20080605, end: 20120904

REACTIONS (7)
  - Psychogenic movement disorder [Not Recovered/Not Resolved]
  - Peroneal muscular atrophy [Not Recovered/Not Resolved]
  - Ejaculation disorder [Unknown]
  - Paraesthesia [Unknown]
  - Vision blurred [Unknown]
  - Pain in extremity [Unknown]
  - Malaise [Unknown]
